FAERS Safety Report 10153836 (Version 1)
Quarter: 2014Q2

REPORT INFORMATION
  Report Type: Spontaneous
  Country: US (occurrence: US)
  Receive Date: 20140506
  Receipt Date: 20140506
  Transmission Date: 20141212
  Serious: Yes (Other)
  Sender: FDA-Public Use
  Company Number: US-PFIZER INC-2014120950

PATIENT
  Age: 26 Year
  Sex: Female

DRUGS (3)
  1. PHOSPHOLINE IODIDE [Suspect]
     Indication: GLAUCOMA
     Dosage: 1 GTT, 2X/DAY
     Dates: start: 1993
  2. PHOSPHOLINE IODIDE [Suspect]
     Dosage: 1 GTT, DAILY
     Dates: start: 20140428
  3. SYNTHROID [Concomitant]
     Indication: HYPOTHYROIDISM
     Dosage: 125 UG, DAILY

REACTIONS (2)
  - Blindness unilateral [Unknown]
  - Visual acuity reduced [Unknown]
